FAERS Safety Report 20331542 (Version 1)
Quarter: 2022Q1

REPORT INFORMATION
  Report Type: Spontaneous
  Country: IR (occurrence: IR)
  Receive Date: 20220113
  Receipt Date: 20220113
  Transmission Date: 20220423
  Serious: Yes (Death)
  Sender: FDA-Public Use
  Company Number: IR-NOVARTISPH-NVSC2022IR005096

PATIENT
  Age: 24 Year
  Sex: Female

DRUGS (4)
  1. CYCLOSPORINE [Suspect]
     Active Substance: CYCLOSPORINE
     Indication: Prophylaxis against graft versus host disease
     Dosage: 1.5 MG/KG, QD FROM DAY -1
     Route: 042
  2. CYCLOSPORINE [Suspect]
     Active Substance: CYCLOSPORINE
     Dosage: 3 OR 9 MG/KG, QD FROM DAY 7
     Route: 042
  3. METHYLPREDNISOLONE [Suspect]
     Active Substance: METHYLPREDNISOLONE
     Indication: Prophylaxis against graft versus host disease
     Dosage: 1 MG/KG, QD, FROM DAY -2 TO DAY + 7
     Route: 042
  4. METHYLPREDNISOLONE [Suspect]
     Active Substance: METHYLPREDNISOLONE
     Dosage: 0.5 MG/KG, QD CONTINUED UNTIL DAY + 14
     Route: 042

REACTIONS (1)
  - Graft versus host disease in gastrointestinal tract [Fatal]
